FAERS Safety Report 13123673 (Version 1)
Quarter: 2017Q1

REPORT INFORMATION
  Report Type: Spontaneous
  Country: US (occurrence: US)
  Receive Date: 20170117
  Receipt Date: 20170117
  Transmission Date: 20170428
  Serious: Yes (Other)
  Sender: FDA-Public Use
  Company Number: US-ROCHE-1879671

PATIENT
  Sex: Male

DRUGS (1)
  1. CELLCEPT [Suspect]
     Active Substance: MYCOPHENOLATE MOFETIL\MYCOPHENOLATE MOFETIL HYDROCHLORIDE
     Indication: MYASTHENIA GRAVIS
     Dosage: ABOUT 2 YEARS
     Route: 048

REACTIONS (6)
  - Drug ineffective [Unknown]
  - Somnolence [Recovered/Resolved]
  - Mood swings [Recovered/Resolved]
  - Feeling abnormal [Recovered/Resolved]
  - Cataract [Unknown]
  - Retinal detachment [Unknown]
